FAERS Safety Report 7448172-9 (Version None)
Quarter: 2011Q2

REPORT INFORMATION
  Report Type: 
  Country: None (occurrence: None)
  Receive Date: 20110429
  Receipt Date: 20101209
  Transmission Date: 20111010
  Serious: No
  Sender: FDA-Public Use
  Company Number: US-ASTRAZENECA-2010SE10138

PATIENT
  Age: 76 Year
  Sex: Female
  Weight: 38.6 kg

DRUGS (6)
  1. VALIUM [Concomitant]
  2. NEXIUM [Suspect]
     Route: 048
  3. SEROQUEL [Suspect]
     Indication: BIPOLAR DISORDER
     Route: 048
  4. SEROQUEL [Suspect]
     Route: 048
     Dates: start: 20101201
  5. SEROQUEL [Suspect]
     Route: 048
     Dates: end: 20101201
  6. PAIN MEDICATION (UNSPECIFIED) [Concomitant]

REACTIONS (15)
  - BRONCHITIS CHRONIC [None]
  - CHRONIC OBSTRUCTIVE PULMONARY DISEASE [None]
  - BACK PAIN [None]
  - INSOMNIA [None]
  - INFLUENZA LIKE ILLNESS [None]
  - THYROID DISORDER [None]
  - VOMITING [None]
  - THERAPY REGIMEN CHANGED [None]
  - HEADACHE [None]
  - MALAISE [None]
  - DRUG DOSE OMISSION [None]
  - PARKINSON'S DISEASE [None]
  - DIZZINESS [None]
  - LIMB INJURY [None]
  - NAUSEA [None]
